FAERS Safety Report 14926842 (Version 1)
Quarter: 2018Q2

REPORT INFORMATION
  Report Type: Spontaneous
  Country: FR (occurrence: FR)
  Receive Date: 20180523
  Receipt Date: 20180523
  Transmission Date: 20180711
  Serious: Yes (Other)
  Sender: FDA-Public Use
  Company Number: FR-MERCK KGAA-2048277

PATIENT
  Age: 61 Year
  Sex: Female

DRUGS (2)
  1. NOVOTHYROX [Suspect]
     Active Substance: LEVOTHYROXINE SODIUM
  2. NOVOTHYROX [Suspect]
     Active Substance: LEVOTHYROXINE SODIUM
     Indication: PRODUCT USED FOR UNKNOWN INDICATION
     Dates: start: 201704

REACTIONS (16)
  - Dizziness [None]
  - Aggression [None]
  - Panic reaction [None]
  - Gait disturbance [None]
  - Tachycardia [None]
  - Impatience [None]
  - Pain in extremity [None]
  - Time perception altered [Recovered/Resolved]
  - Total cholesterol/HDL ratio increased [None]
  - Hypothyroidism [None]
  - Fatigue [None]
  - Asthenia [Recovered/Resolved]
  - Hyperthyroidism [None]
  - Anger [None]
  - Blood triglycerides increased [None]
  - Blood cholesterol increased [None]

NARRATIVE: CASE EVENT DATE: 201704
